FAERS Safety Report 6512354-0 (Version None)
Quarter: 2009Q4

REPORT INFORMATION
  Report Type: 
  Country: None (occurrence: None)
  Receive Date: 20091222
  Receipt Date: 20090707
  Transmission Date: 20100525
  Serious: No
  Sender: FDA-Public Use
  Company Number: US-ASTRAZENECA-2009UW18854

PATIENT

DRUGS (3)
  1. CRESTOR [Suspect]
     Route: 048
  2. HYDROCHLOROTHIAZIDE [Interacting]
     Route: 048
  3. DIOVAN [Interacting]
     Route: 048

REACTIONS (2)
  - DRUG INTERACTION [None]
  - RASH [None]
